FAERS Safety Report 9250903 (Version 2)
Quarter: 2014Q1

REPORT INFORMATION
  Report Type: Spontaneous
  Country: US (occurrence: None)
  Receive Date: 20130305
  Receipt Date: 20140306
  Transmission Date: 20141002
  Serious: Yes (Other)
  Sender: FDA-Public Use
  Company Number: 163-21880-12090277

PATIENT
  Age: 57 Year
  Sex: Female
  Weight: 66.23 kg

DRUGS (4)
  1. REVLIMID (LENALIDOMIDE) (CAPSULES) [Suspect]
     Indication: PLASMA CELL MYELOMA
     Dosage: 5 MG 21 IN 28 D, PO
     Route: 048
     Dates: start: 20110329
  2. VELCADE (BORTEZOMIB) [Concomitant]
  3. CYCLOPHOSPHAMIDE [Concomitant]
  4. DEXAMETHASOBE [Concomitant]

REACTIONS (1)
  - Thrombosis [None]
